FAERS Safety Report 20820325 (Version 3)
Quarter: 2022Q3

REPORT INFORMATION
  Report Type: Spontaneous
  Country: US (occurrence: US)
  Receive Date: 20220512
  Receipt Date: 20220916
  Transmission Date: 20221027
  Serious: No
  Sender: FDA-Public Use
  Company Number: US-PFIZER INC-202200328701

PATIENT
  Age: 71 Year
  Sex: Female

DRUGS (1)
  1. XELJANZ XR [Suspect]
     Active Substance: TOFACITINIB CITRATE
     Indication: Rheumatoid arthritis
     Dosage: 11 MG, 1X/DAY
     Route: 048

REACTIONS (6)
  - Eye ulcer [Unknown]
  - Attention deficit hyperactivity disorder [Unknown]
  - Coordination abnormal [Unknown]
  - Dyslexia [Unknown]
  - Eye disorder [Unknown]
  - Condition aggravated [Unknown]
